FAERS Safety Report 21738395 (Version 1)
Quarter: 2022Q4

REPORT INFORMATION
  Report Type: Spontaneous
  Country: US (occurrence: US)
  Receive Date: 20221216
  Receipt Date: 20221216
  Transmission Date: 20230113
  Serious: No
  Sender: FDA-Public Use
  Company Number: US-TEVA-2022-US-2834840

PATIENT
  Age: 55 Year
  Sex: Female

DRUGS (1)
  1. COPAXONE [Suspect]
     Active Substance: GLATIRAMER ACETATE
     Indication: Product used for unknown indication
     Dosage: FORM STRENGTH : 20 MG/ML   ; UNIT DOSE : 20 MG/ML
     Route: 065
     Dates: start: 2012

REACTIONS (1)
  - Drug ineffective [Unknown]
